FAERS Safety Report 8329141-3 (Version None)
Quarter: 2012Q2

REPORT INFORMATION
  Report Type: 
  Country: None (occurrence: None)
  Receive Date: 20120502
  Receipt Date: 20120424
  Transmission Date: 20120825
  Serious: Yes (Other)
  Sender: FDA-Public Use
  Company Number: US-JNJFOC-20120411858

PATIENT
  Sex: Female

DRUGS (17)
  1. XANAX [Concomitant]
     Route: 048
  2. COUMADIN [Concomitant]
     Dosage: FOR ONE DOSE NOW
  3. LOVENOX [Concomitant]
     Route: 058
  4. PROZAC [Concomitant]
     Route: 048
  5. ZOFRAN [Concomitant]
     Route: 042
  6. PERCOCET [Concomitant]
  7. DOCUSATE [Concomitant]
     Route: 048
  8. OXYCONTIN [Concomitant]
  9. QUETIAPINE [Concomitant]
  10. SALINE NOSE SPRAY [Concomitant]
     Route: 045
  11. COUMADIN [Concomitant]
     Dosage: ONCE A DAY ADJUSTED BASED ON INR RESPONSE
  12. TYLENOL (CAPLET) [Concomitant]
     Route: 048
  13. XARELTO [Suspect]
     Indication: KNEE ARTHROPLASTY
     Route: 048
  14. CYMBALTA [Concomitant]
     Route: 048
  15. LAMICTAL [Concomitant]
     Route: 048
  16. PROTONIX [Concomitant]
     Route: 048
  17. XARELTO [Suspect]
     Indication: THROMBOSIS PROPHYLAXIS
     Route: 048

REACTIONS (1)
  - PULMONARY EMBOLISM [None]
